FAERS Safety Report 8264712-4 (Version None)
Quarter: 2012Q2

REPORT INFORMATION
  Report Type: 
  Country: None (occurrence: None)
  Receive Date: 20120406
  Receipt Date: 20120403
  Transmission Date: 20120825
  Serious: Yes (Life-Threatening)
  Sender: FDA-Public Use
  Company Number: NO-JNJFOC-20120401699

PATIENT
  Sex: Male

DRUGS (2)
  1. DIAZEPAM [Concomitant]
     Indication: DELIRIUM
     Dosage: REPEATED DOSE OF 2,5 MG ; TOTALLY CA. 57 MG DURING 1 DAY
     Route: 040
     Dates: start: 20120318, end: 20120319
  2. HALDOL [Suspect]
     Indication: DELIRIUM
     Dosage: MULTIPLE DOSES ; TOTALLY 165 MG DURING 1 DAY
     Route: 040
     Dates: start: 20120318, end: 20120319

REACTIONS (2)
  - CARDIAC ARREST [None]
  - RESPIRATORY ARREST [None]
